FAERS Safety Report 13825569 (Version 4)
Quarter: 2017Q4

REPORT INFORMATION
  Report Type: Spontaneous
  Country: KR (occurrence: KR)
  Receive Date: 20170802
  Receipt Date: 20171115
  Transmission Date: 20180320
  Serious: Yes (Other)
  Sender: FDA-Public Use
  Company Number: KR-009507513-1707KOR012225

PATIENT
  Age: 54 Year
  Sex: Female
  Weight: 57 kg

DRUGS (11)
  1. VANCOMYCIN [Concomitant]
     Active Substance: VANCOMYCIN
     Indication: INFECTION PROPHYLAXIS
     Dosage: 1 G, BID (TWICE A DAY)
     Route: 042
     Dates: start: 20170711, end: 20170720
  2. MEROPENEM. [Concomitant]
     Active Substance: MEROPENEM
     Indication: INFECTION PROPHYLAXIS
     Dosage: 1 G, TID (THREE TIMES A DAY)
     Route: 042
     Dates: start: 20170711, end: 20170804
  3. LEVOFLOXACIN. [Concomitant]
     Active Substance: LEVOFLOXACIN
     Indication: INFECTION PROPHYLAXIS
     Dosage: 750 MG, QD (ONCE DAILY)
     Dates: start: 20170724, end: 20170727
  4. CEFAZOLIN SODIUM. [Concomitant]
     Active Substance: CEFAZOLIN SODIUM
     Indication: INFECTION PROPHYLAXIS
     Dosage: 2 G, TID (THREE TIMES A DAY)
     Route: 042
     Dates: start: 20170710, end: 20170710
  5. CEFTAZIDIME. [Concomitant]
     Active Substance: CEFTAZIDIME
     Indication: INFECTION PROPHYLAXIS
     Dosage: 2 G, TID (THREE TIMES A DAY)
     Route: 042
     Dates: start: 20170710, end: 20170710
  6. CYTARABINE. [Concomitant]
     Active Substance: CYTARABINE
     Indication: ACUTE MYELOID LEUKAEMIA
     Dosage: 310 MG, QD (ONCE DAILY)
     Route: 042
     Dates: start: 20170701, end: 20170707
  7. NOXAFIL [Suspect]
     Active Substance: POSACONAZOLE
     Dosage: 300 MG, BID (TWICE A DAY)
     Route: 048
     Dates: start: 20170701, end: 20170701
  8. TABAXIN [Concomitant]
     Active Substance: PIPERACILLIN SODIUM\TAZOBACTAM SODIUM
     Indication: INFECTION PROPHYLAXIS
     Dosage: 4.5 G, 4/DAY
     Route: 042
     Dates: start: 20170629, end: 20170707
  9. LEVOFLOXACIN. [Concomitant]
     Active Substance: LEVOFLOXACIN
     Dosage: 750 MG, QD, ONCE DAILY
     Route: 048
     Dates: start: 20170708, end: 20170710
  10. NOXAFIL [Suspect]
     Active Substance: POSACONAZOLE
     Indication: ANTIFUNGAL PROPHYLAXIS
     Dosage: 300 MG, QD(ONCE A DAY)
     Route: 048
     Dates: start: 20170702, end: 20170723
  11. LEVOFLOXACIN. [Concomitant]
     Active Substance: LEVOFLOXACIN
     Dosage: 750 MG, QD(ONCE DAILY)
     Route: 042
     Dates: start: 20170629, end: 20170707

REACTIONS (1)
  - Bacteraemia [Recovered/Resolved]

NARRATIVE: CASE EVENT DATE: 20170720
